FAERS Safety Report 10529076 (Version 5)
Quarter: 2015Q2

REPORT INFORMATION
  Report Type: Report from Study
  Country: US (occurrence: US)
  Receive Date: 20141020
  Receipt Date: 20150612
  Transmission Date: 20150821
  Serious: Yes (Hospitalization, Other)
  Sender: FDA-Public Use
  Company Number: US-SA-2014SA141013

PATIENT
  Age: 51 Year
  Sex: Female

DRUGS (3)
  1. KLONOPIN [Concomitant]
     Active Substance: CLONAZEPAM
     Dosage: STRENGTH: 0.5MG
  2. AUBAGIO [Suspect]
     Active Substance: TERIFLUNOMIDE
     Indication: MULTIPLE SCLEROSIS
     Dosage: DOSE : 7 MG THEN 14 MG
     Route: 048
     Dates: start: 20140915
  3. COPAXONE [Concomitant]
     Active Substance: GLATIRAMER ACETATE
     Indication: MULTIPLE SCLEROSIS
     Dates: start: 20140403, end: 20140903

REACTIONS (23)
  - Pain [Not Recovered/Not Resolved]
  - Insomnia [Unknown]
  - Mean cell haemoglobin [Unknown]
  - Chromaturia [Unknown]
  - Blood alkaline phosphatase decreased [Unknown]
  - Gastritis [Unknown]
  - Hot flush [Unknown]
  - Gastric disorder [Unknown]
  - Haematochezia [Unknown]
  - Pruritus [Unknown]
  - Gait disturbance [Unknown]
  - Depression [Unknown]
  - Rash [Unknown]
  - Rectal haemorrhage [Unknown]
  - Malaise [Unknown]
  - Inappropriate schedule of drug administration [Unknown]
  - Abdominal pain upper [Unknown]
  - Hyperhidrosis [Unknown]
  - Fatigue [Unknown]
  - Muscle spasms [Unknown]
  - Constipation [Unknown]
  - Headache [Unknown]
  - Weight decreased [Unknown]

NARRATIVE: CASE EVENT DATE: 20140915
